FAERS Safety Report 5166483-7 (Version None)
Quarter: 2006Q4

REPORT INFORMATION
  Report Type: 
  Country: None (occurrence: None)
  Receive Date: 20061207
  Receipt Date: 20061127
  Transmission Date: 20070319
  Serious: Yes (Hospitalization)
  Sender: FDA-Public Use
  Company Number: PHEH2006US14668

PATIENT
  Sex: Female

DRUGS (1)
  1. DIOVAN [Suspect]
     Dosage: UNK, UNK
     Dates: start: 20061124, end: 20061127

REACTIONS (4)
  - DEPENDENCE ON RESPIRATOR [None]
  - DIZZINESS [None]
  - HYPOTONIA [None]
  - SWELLING FACE [None]
